FAERS Safety Report 6354331-9 (Version None)
Quarter: 2009Q3

REPORT INFORMATION
  Report Type: 
  Country: None (occurrence: None)
  Receive Date: 20090914
  Receipt Date: 20090601
  Transmission Date: 20100115
  Serious: No
  Sender: FDA-Public Use
  Company Number: US-BAYER-200923296NA

PATIENT
  Age: 62 Year
  Sex: Female

DRUGS (2)
  1. NEXAVAR [Suspect]
     Indication: MALIGNANT MELANOMA
     Dates: start: 20090301
  2. TAXOL [Concomitant]

REACTIONS (5)
  - MOUTH ULCERATION [None]
  - NAIL BED INFECTION [None]
  - NAIL DISCOLOURATION [None]
  - NAIL DISORDER [None]
  - PURULENT DISCHARGE [None]
